FAERS Safety Report 4800070-2 (Version None)
Quarter: 2005Q4

REPORT INFORMATION
  Report Type: 
  Country: None (occurrence: None)
  Receive Date: 20051012
  Receipt Date: 20051012
  Transmission Date: 20060501
  Serious: Yes (Other)
  Sender: FDA-Public Use
  Company Number: None

PATIENT
  Sex: Male

DRUGS (8)
  1. OXYCONTIN [Suspect]
     Indication: OSTEOARTHRITIS
     Dosage: 80 BID    40 BID
     Dates: start: 20041101
  2. OXYCONTIN [Suspect]
     Indication: PAIN
     Dosage: 80 BID    40 BID
     Dates: start: 20041101
  3. VALIUM [Concomitant]
  4. SOMA [Concomitant]
  5. ELAVIL [Concomitant]
  6. CELEXA [Concomitant]
  7. ATENOLOL [Concomitant]
  8. LOTRIMIN [Concomitant]

REACTIONS (2)
  - INADEQUATE ANALGESIA [None]
  - THERAPEUTIC RESPONSE UNEXPECTED WITH DRUG SUBSTITUTION [None]
